FAERS Safety Report 7158948-3 (Version None)
Quarter: 2010Q4

REPORT INFORMATION
  Report Type: 
  Country: None (occurrence: None)
  Receive Date: 20101130
  Receipt Date: 20101116
  Transmission Date: 20110411
  Serious: Yes (Death)
  Sender: FDA-Public Use
  Company Number: 2010MA001101

PATIENT
  Age: 63 Year
  Sex: Female

DRUGS (10)
  1. TRAMADOL HYDROCHLORIDE [Suspect]
     Indication: BACK PAIN
     Dosage: PO
     Route: 048
     Dates: start: 20100322, end: 20100325
  2. CITALOPRAM HYDROBROMIDE [Suspect]
     Dosage: PO
     Route: 048
     Dates: start: 20050805, end: 20100330
  3. CHLORPROMAZINE [Concomitant]
  4. VITAMIN B [Concomitant]
  5. ACETYLSALICYLIC ACID [Concomitant]
  6. ATORVASTATIN [Concomitant]
  7. PIOGLITAZONE [Concomitant]
  8. FUROSEMIDE [Concomitant]
  9. METFORMIN HCL [Concomitant]
  10. PREV MEDS [Concomitant]

REACTIONS (1)
  - MULTIPLE DRUG OVERDOSE [None]
